FAERS Safety Report 6327984-9 (Version None)
Quarter: 2009Q3

REPORT INFORMATION
  Report Type: 
  Country: None (occurrence: None)
  Receive Date: 20090825
  Receipt Date: 20080902
  Transmission Date: 20100115
  Serious: No
  Sender: FDA-Public Use
  Company Number: US-ABBOTT-08P-163-0473550-00

PATIENT
  Sex: Female
  Weight: 90.346 kg

DRUGS (1)
  1. SYNTHROID [Suspect]
     Indication: HYPOTHYROIDISM
     Dosage: DAILY
     Route: 048
     Dates: start: 20010101

REACTIONS (4)
  - FATIGUE [None]
  - MALAISE [None]
  - SWELLING [None]
  - WEIGHT INCREASED [None]
